FAERS Safety Report 16298024 (Version 1)
Quarter: 2019Q2

REPORT INFORMATION
  Report Type: Spontaneous
  Country: DE (occurrence: DE)
  Receive Date: 20190510
  Receipt Date: 20190510
  Transmission Date: 20190711
  Serious: Yes (Other)
  Sender: FDA-Public Use
  Company Number: DE-009507513-1904DEU002377

PATIENT
  Age: 35 Year
  Sex: Female

DRUGS (4)
  1. OVALEAP [Suspect]
     Active Substance: FOLLITROPIN
     Indication: IN VITRO FERTILISATION
     Dosage: 150 I.U. ON 10 CONSECUTIVE DAYS
  2. ORGALUTRAN [Suspect]
     Active Substance: GANIRELIX ACETATE
     Indication: OVULATION INDUCTION
  3. ORGALUTRAN [Suspect]
     Active Substance: GANIRELIX ACETATE
     Indication: IN VITRO FERTILISATION
     Dosage: 0.25 MG/ 0.25 MMOL (ALSO REPORTED AS 0.25 MG ON 6 CONSECUTIVE DAYS)
     Route: 058
  4. OVALEAP [Suspect]
     Active Substance: FOLLITROPIN
     Indication: OVULATION INDUCTION

REACTIONS (3)
  - Blood creatinine increased [Unknown]
  - Hepatic enzyme increased [Unknown]
  - Ovarian hyperstimulation syndrome [Unknown]
